FAERS Safety Report 4602629-4 (Version None)
Quarter: 2005Q1

REPORT INFORMATION
  Report Type: 
  Country: None (occurrence: None)
  Receive Date: 20050309
  Receipt Date: 20050209
  Transmission Date: 20050727
  Serious: Yes (Hospitalization)
  Sender: FDA-Public Use
  Company Number: DE-BRISTOL-MYERS SQUIBB COMPANY-12864187

PATIENT
  Age: 26 Year
  Sex: Female
  Weight: 103 kg

DRUGS (8)
  1. ENDOXAN [Suspect]
     Indication: SYSTEMIC LUPUS ERYTHEMATOSUS
     Route: 042
     Dates: start: 20050101, end: 20050201
  2. UROMITEXAN [Suspect]
     Indication: SYSTEMIC LUPUS ERYTHEMATOSUS
     Route: 042
     Dates: start: 20050101, end: 20050201
  3. ACE INHIBITOR [Concomitant]
  4. ZOFRAN [Concomitant]
  5. FUROSEMIDE [Concomitant]
  6. XIPAMIDE [Concomitant]
  7. BELOC-ZOK MITE [Concomitant]
  8. AMPICILLIN SODIUM/SULBACTAM SODIUM [Concomitant]
     Indication: URINARY TRACT INFECTION
     Dates: start: 20041201

REACTIONS (5)
  - ARTHRALGIA [None]
  - HEADACHE [None]
  - OEDEMA PERIPHERAL [None]
  - PYREXIA [None]
  - VISUAL DISTURBANCE [None]
